FAERS Safety Report 23918724 (Version 3)
Quarter: 2024Q3

REPORT INFORMATION
  Report Type: Spontaneous
  Country: US (occurrence: US)
  Receive Date: 20240530
  Receipt Date: 20240820
  Transmission Date: 20241017
  Serious: No
  Sender: BRISTOL MYERS SQUIBB
  Company Number: US-BRISTOL-MYERS SQUIBB COMPANY-2024-085997

PATIENT
  Age: 69 Year
  Sex: Female
  Weight: 56.25 kg

DRUGS (2)
  1. REVLIMID [Suspect]
     Active Substance: LENALIDOMIDE
     Indication: Product used for unknown indication
     Route: 048
     Dates: start: 20240215
  2. REVLIMID [Suspect]
     Active Substance: LENALIDOMIDE
     Route: 048

REACTIONS (4)
  - Rash pruritic [Not Recovered/Not Resolved]
  - Fatigue [Recovering/Resolving]
  - Rash [Recovering/Resolving]
  - White blood cell count decreased [Recovering/Resolving]
